FAERS Safety Report 15306842 (Version 1)
Quarter: 2018Q3

REPORT INFORMATION
  Report Type: Spontaneous
  Country: TW (occurrence: TW)
  Receive Date: 20180822
  Receipt Date: 20180822
  Transmission Date: 20181010
  Serious: Yes (Death, Other)
  Sender: FDA-Public Use
  Company Number: TW-PFIZER INC-2018002568

PATIENT
  Age: 63 Year
  Sex: Male

DRUGS (2)
  1. INLYTA [Suspect]
     Active Substance: AXITINIB
     Indication: RENAL CELL CARCINOMA
     Dosage: 5 MG, BID (TWICE A DAY)
     Route: 048
     Dates: start: 20171027
  2. INLYTA [Suspect]
     Active Substance: AXITINIB
     Dosage: 7 MG, BID
     Route: 048
     Dates: start: 201803, end: 201805

REACTIONS (8)
  - Death [Fatal]
  - Abdominal discomfort [Not Recovered/Not Resolved]
  - Haemoglobin decreased [Unknown]
  - Intentional product misuse [Unknown]
  - Decreased appetite [Not Recovered/Not Resolved]
  - Cerebrovascular accident [Recovered/Resolved]
  - Diarrhoea [Not Recovered/Not Resolved]
  - Dizziness [Not Recovered/Not Resolved]

NARRATIVE: CASE EVENT DATE: 201712
